FAERS Safety Report 15119454 (Version 1)
Quarter: 2018Q3

REPORT INFORMATION
  Report Type: Spontaneous
  Country: US (occurrence: US)
  Receive Date: 20180613
  Receipt Date: 20180613
  Transmission Date: 20181010
  Serious: Yes (Hospitalization)
  Sender: FDA-Public Use
  Company Number: None

PATIENT
  Sex: Male

DRUGS (14)
  1. TRULICITY [Concomitant]
     Active Substance: DULAGLUTIDE
  2. AMLODIPINE [Concomitant]
     Active Substance: AMLODIPINE BESYLATE
  3. TERAZOSIN [Concomitant]
     Active Substance: TERAZOSIN\TERAZOSIN HYDROCHLORIDE
  4. GABAPENTIN. [Concomitant]
     Active Substance: GABAPENTIN
  5. HUMIRA [Suspect]
     Active Substance: ADALIMUMAB
     Indication: PSORIASIS
     Route: 058
     Dates: start: 20150730
  6. ALBUTEROL. [Concomitant]
     Active Substance: ALBUTEROL
  7. METOPORLOL [Concomitant]
  8. ADVAIR HFA [Concomitant]
     Active Substance: FLUTICASONE PROPIONATE\SALMETEROL XINAFOATE
  9. HUMALOG [Concomitant]
     Active Substance: INSULIN LISPRO
  10. GLIMEPIRIDE. [Concomitant]
     Active Substance: GLIMEPIRIDE
  11. HCTZ [Concomitant]
     Active Substance: HYDROCHLOROTHIAZIDE
  12. GEMFIBROZIL. [Concomitant]
     Active Substance: GEMFIBROZIL
  13. QUINAPRIL. [Concomitant]
     Active Substance: QUINAPRIL
  14. LANTUS [Concomitant]
     Active Substance: INSULIN GLARGINE

REACTIONS (1)
  - Fall [None]
